FAERS Safety Report 25662926 (Version 3)
Quarter: 2025Q3

REPORT INFORMATION
  Report Type: Spontaneous
  Country: US (occurrence: US)
  Receive Date: 20250811
  Receipt Date: 20250829
  Transmission Date: 20251021
  Serious: Yes (Hospitalization)
  Sender: BIOGEN
  Company Number: US-BIOGEN-2025BI01319900

PATIENT
  Age: 47 Year
  Sex: Male

DRUGS (2)
  1. QALSODY [Suspect]
     Active Substance: TOFERSEN
     Indication: Amyotrophic lateral sclerosis
     Route: 050
     Dates: start: 20250611, end: 20250723
  2. RADICAVA [Concomitant]
     Active Substance: EDARAVONE
     Route: 050
     Dates: start: 202506

REACTIONS (2)
  - Pulmonary embolism [Recovered/Resolved]
  - Hypercoagulation [Unknown]

NARRATIVE: CASE EVENT DATE: 20250731
